FAERS Safety Report 14386459 (Version 1)
Quarter: 2018Q1

REPORT INFORMATION
  Report Type: Spontaneous
  Country: US (occurrence: US)
  Receive Date: 20180115
  Receipt Date: 20180115
  Transmission Date: 20180509
  Serious: Yes (Other)
  Sender: FDA-Public Use
  Company Number: US-SA-2017SA128101

PATIENT
  Age: 53 Year
  Sex: Female
  Weight: 111.13 kg

DRUGS (12)
  1. TAXOTERE [Suspect]
     Active Substance: DOCETAXEL
     Indication: METAPLASTIC BREAST CARCINOMA
     Route: 051
     Dates: start: 20090612, end: 20090612
  2. TAC [Concomitant]
     Active Substance: TRIAMCINOLONE ACETONIDE
  3. LIPITOR [Concomitant]
     Active Substance: ATORVASTATIN CALCIUM
  4. PHENERGAN [Concomitant]
     Active Substance: PROMETHAZINE HYDROCHLORIDE
  5. DEXAMETHASONE. [Concomitant]
     Active Substance: DEXAMETHASONE
  6. LISINOPRIL. [Concomitant]
     Active Substance: LISINOPRIL
  7. TRAMADOL. [Concomitant]
     Active Substance: TRAMADOL
  8. TAXOTERE [Suspect]
     Active Substance: DOCETAXEL
     Indication: METAPLASTIC BREAST CARCINOMA
     Route: 051
     Dates: start: 20090928, end: 20090928
  9. JANUVIA [Concomitant]
     Active Substance: SITAGLIPTIN PHOSPHATE
  10. LORAZEPAM. [Concomitant]
     Active Substance: LORAZEPAM
  11. ACTOS [Concomitant]
     Active Substance: PIOGLITAZONE HYDROCHLORIDE
  12. CITALOPRAM [Concomitant]
     Active Substance: CITALOPRAM HYDROBROMIDE

REACTIONS (2)
  - Alopecia [Not Recovered/Not Resolved]
  - Psychological trauma [Unknown]

NARRATIVE: CASE EVENT DATE: 200907
